FAERS Safety Report 25118111 (Version 1)
Quarter: 2025Q1

REPORT INFORMATION
  Report Type: Spontaneous
  Country: ZA (occurrence: ZA)
  Receive Date: 20250325
  Receipt Date: 20250325
  Transmission Date: 20250409
  Serious: Yes (Other)
  Sender: PFIZER
  Company Number: ZA-PFIZER INC-202500063721

PATIENT
  Age: 52 Year
  Sex: Female

DRUGS (2)
  1. METHOTREXATE SODIUM [Suspect]
     Active Substance: METHOTREXATE SODIUM
     Dosage: 25 MG, WEEKLY
     Dates: start: 202201
  2. SULFASALAZINE [Suspect]
     Active Substance: SULFASALAZINE
     Dosage: 1 G, 2X/DAY
     Dates: start: 202201, end: 202412

REACTIONS (3)
  - Renal impairment [Unknown]
  - Peptic ulcer [Unknown]
  - Granuloma annulare [Unknown]

NARRATIVE: CASE EVENT DATE: 20230501
